FAERS Safety Report 4432287-3 (Version None)
Quarter: 2004Q3

REPORT INFORMATION
  Report Type: 
  Country: None (occurrence: None)
  Receive Date: 20040819
  Receipt Date: 20040811
  Transmission Date: 20050211
  Serious: Yes (Hospitalization)
  Sender: FDA-Public Use
  Company Number: AZAUS200400059

PATIENT
  Sex: Female

DRUGS (1)
  1. AZACITIDINE (AZACTIDINE) (INJECTION) [Suspect]
     Indication: MYELODYSPLASTIC SYNDROME
     Dosage: (X 7 DAYS), SC
     Route: 058
     Dates: start: 20040801

REACTIONS (1)
  - PERICARDIAL EFFUSION [None]
